FAERS Safety Report 6731462-2 (Version None)
Quarter: 2010Q2

REPORT INFORMATION
  Report Type: 
  Country: None (occurrence: None)
  Receive Date: 20100519
  Receipt Date: 20100513
  Transmission Date: 20101027
  Serious: Yes (Hospitalization)
  Sender: FDA-Public Use
  Company Number: US-BIOGENIDEC-2010BI014386

PATIENT
  Age: 20 Year
  Sex: Female

DRUGS (3)
  1. TYSABRI [Suspect]
     Indication: MULTIPLE SCLEROSIS
     Route: 042
     Dates: start: 20070116, end: 20070824
  2. TYSABRI [Suspect]
     Route: 042
     Dates: start: 20070920, end: 20090617
  3. TYSABRI [Suspect]
     Route: 042
     Dates: start: 20100305

REACTIONS (6)
  - DEPRESSION [None]
  - HYPERGLYCAEMIA [None]
  - MULTIPLE SCLEROSIS RELAPSE [None]
  - NAUSEA [None]
  - TACHYCARDIA [None]
  - VOMITING [None]
